FAERS Safety Report 23315346 (Version 1)
Quarter: 2023Q4

REPORT INFORMATION
  Report Type: Spontaneous
  Country: US (occurrence: US)
  Receive Date: 20231219
  Receipt Date: 20231219
  Transmission Date: 20240109
  Serious: No
  Sender: FDA-Public Use
  Company Number: US-ORG100016242-2022002919

PATIENT

DRUGS (4)
  1. EXPAREL [Suspect]
     Active Substance: BUPIVACAINE
     Indication: Nerve block
     Dates: start: 20221108, end: 20221108
  2. BUPIVACAINE HYDROCHLORIDE [Suspect]
     Active Substance: BUPIVACAINE HYDROCHLORIDE\BUPIVACAINE HYDROCHLORIDE ANHYDROUS
     Indication: Nerve block
     Dates: start: 20221108, end: 20221108
  3. FENTANYL [Concomitant]
     Active Substance: FENTANYL\FENTANYL CITRATE
     Indication: Hysterectomy
     Dates: start: 20221108, end: 20221108
  4. oxy [Concomitant]
     Indication: Postoperative analgesia
     Dates: start: 20221108, end: 20221108

REACTIONS (1)
  - Drug ineffective [Unknown]
